FAERS Safety Report 11787228 (Version 1)
Quarter: 2015Q4

REPORT INFORMATION
  Report Type: Spontaneous
  Country: CH (occurrence: CH)
  Receive Date: 20151130
  Receipt Date: 20151130
  Transmission Date: 20160305
  Serious: Yes (Hospitalization, Other)
  Sender: FDA-Public Use
  Company Number: CH-009507513-1511CHE015653

PATIENT
  Age: 76 Year
  Sex: Female

DRUGS (5)
  1. CHONDROITIN SULFATE SODIUM [Suspect]
     Active Substance: CHONDROITIN SULFATE (CHICKEN)
     Dosage: UNK, ONCE
     Route: 048
     Dates: start: 20150513, end: 20150513
  2. ACETAMINOPHEN. [Suspect]
     Active Substance: ACETAMINOPHEN
     Dosage: UNK, ONCE
     Route: 048
     Dates: start: 20150513, end: 20150513
  3. JANUVIA [Suspect]
     Active Substance: SITAGLIPTIN PHOSPHATE
     Dosage: UNK UNK, ONCE
     Route: 048
     Dates: start: 20150513, end: 20150513
  4. ERDOSTEINE [Suspect]
     Active Substance: ERDOSTEINE
     Dosage: UNK, ONCE
     Route: 048
     Dates: start: 20150513, end: 20150513
  5. CLORAZEPATE DIPOTASSIUM. [Suspect]
     Active Substance: CLORAZEPATE DIPOTASSIUM
     Dosage: UNK, ONCE
     Route: 048
     Dates: start: 20150513, end: 20150513

REACTIONS (5)
  - International normalised ratio increased [Recovered/Resolved]
  - Hepatic necrosis [Recovered/Resolved]
  - Confusional state [Recovered/Resolved]
  - Sopor [Recovered/Resolved]
  - Suicide attempt [Recovered/Resolved]

NARRATIVE: CASE EVENT DATE: 20150513
